FAERS Safety Report 25673872 (Version 1)
Quarter: 2025Q3

REPORT INFORMATION
  Report Type: Spontaneous
  Country: US (occurrence: US)
  Receive Date: 20250813
  Receipt Date: 20250813
  Transmission Date: 20251020
  Serious: No
  Sender: SPECGX
  Company Number: US-SPECGX-T202500546

PATIENT
  Sex: Female

DRUGS (1)
  1. OXYCODONE [Suspect]
     Active Substance: OXYCODONE
     Indication: Breakthrough pain
     Route: 065
     Dates: start: 2009

REACTIONS (3)
  - Nausea [Unknown]
  - Suspected product quality issue [Unknown]
  - Drug ineffective [Unknown]
